FAERS Safety Report 9898466 (Version 2)
Quarter: 2014Q1

REPORT INFORMATION
  Report Type: Spontaneous
  Country: US (occurrence: US)
  Receive Date: 20140214
  Receipt Date: 20140214
  Transmission Date: 20141002
  Serious: Yes (Hospitalization, Other)
  Sender: FDA-Public Use
  Company Number: US-TEVA-454821USA

PATIENT
  Age: 77 Year
  Sex: Male

DRUGS (1)
  1. CARBIDOPA AND LEVODOPA [Suspect]
     Indication: TREMOR
     Dates: start: 20120509, end: 20130713

REACTIONS (9)
  - Dyskinesia [Recovered/Resolved]
  - Convulsion [Unknown]
  - Loss of consciousness [Unknown]
  - Ear pain [Recovered/Resolved]
  - Fall [Recovered/Resolved]
  - Asthenia [Recovered/Resolved]
  - Headache [Recovered/Resolved]
  - Fatigue [Unknown]
  - Head injury [Unknown]
